FAERS Safety Report 16856106 (Version 1)
Quarter: 2019Q3

REPORT INFORMATION
  Report Type: Spontaneous
  Country: ES (occurrence: ES)
  Receive Date: 20190926
  Receipt Date: 20190926
  Transmission Date: 20191005
  Serious: Yes (Other)
  Sender: FDA-Public Use
  Company Number: ES-TEVA-2019-ES-1111837

PATIENT
  Age: 37 Year
  Sex: Male

DRUGS (3)
  1. KONAKION 10 MG/ML SOLUCION ORAL/SOLUCION INYECTABLE , 5 AMPOLLAS DE 1 [Concomitant]
  2. TOBRAMICINA TEVA 300 MG/5 ML SOLUCION PARA INHALACION POR NEBULIZADOR [Suspect]
     Active Substance: TOBRAMYCIN
     Indication: CYSTIC FIBROSIS
     Dosage: 300 MG PER 12 HOURS
     Route: 055
     Dates: start: 2015, end: 20190704
  3. SEROXAT 20 MG COMPRIMIDOS RECUBIERTOS CON PELICULA, 14 COMPRIMIDOS [Concomitant]
     Dosage: 20 MG PER DAY
     Route: 048

REACTIONS (3)
  - Chest discomfort [Recovered/Resolved]
  - Product substitution issue [Recovered/Resolved]
  - Cough [Recovered/Resolved]

NARRATIVE: CASE EVENT DATE: 2015
